FAERS Safety Report 16265532 (Version 1)
Quarter: 2019Q2

REPORT INFORMATION
  Report Type: Spontaneous
  Country: US (occurrence: US)
  Receive Date: 20190502
  Receipt Date: 20190502
  Transmission Date: 20190711
  Serious: No
  Sender: FDA-Public Use
  Company Number: PHEH2019US017555

PATIENT
  Sex: Female
  Weight: 110.22 kg

DRUGS (2)
  1. AZULFIDINE [Concomitant]
     Active Substance: SULFASALAZINE
     Dosage: 1000 MG, BID
     Route: 065
     Dates: start: 20181015
  2. COSENTYX [Suspect]
     Active Substance: SECUKINUMAB
     Indication: PSORIATIC ARTHROPATHY
     Dosage: 300 MG, UNKNOWN
     Route: 058
     Dates: start: 20180430, end: 20190401

REACTIONS (1)
  - Sinusitis [Unknown]

NARRATIVE: CASE EVENT DATE: 20190112
